FAERS Safety Report 21233168 (Version 13)
Quarter: 2025Q2

REPORT INFORMATION
  Report Type: Report from Study
  Country: US (occurrence: US)
  Receive Date: 20220819
  Receipt Date: 20250402
  Transmission Date: 20250716
  Serious: Yes (Disabling)
  Sender: TAKEDA
  Company Number: US-TAKEDA-US201842602

PATIENT
  Age: 67 Year
  Sex: Female

DRUGS (4)
  1. LANADELUMAB [Suspect]
     Active Substance: LANADELUMAB
     Indication: Prophylaxis
     Dosage: 300 MILLIGRAM, Q2WEEKS
  2. LANADELUMAB [Suspect]
     Active Substance: LANADELUMAB
     Indication: Hereditary angioedema
     Dosage: UNK UNK, Q4WEEKS
  3. FIRAZYR [Suspect]
     Active Substance: ICATIBANT ACETATE
     Indication: Immune system disorder
  4. FIRAZYR [Suspect]
     Active Substance: ICATIBANT ACETATE
     Indication: Hereditary angioedema

REACTIONS (5)
  - Hereditary angioedema [Recovered/Resolved]
  - Product distribution issue [Unknown]
  - Product dose omission issue [Recovered/Resolved]
  - Product use issue [Unknown]
  - Oral disorder [Unknown]

NARRATIVE: CASE EVENT DATE: 20220814
